FAERS Safety Report 10460315 (Version 4)
Quarter: 2019Q1

REPORT INFORMATION
  Report Type: Report from Study
  Country: None (occurrence: US)
  Receive Date: 20140917
  Receipt Date: 20190104
  Transmission Date: 20190417
  Serious: Yes (Other)
  Sender: FDA-Public Use
  Company Number: US-ABBVIE-14P-163-1232898-00

PATIENT
  Sex: Male
  Weight: 95.34 kg

DRUGS (7)
  1. HUMIRA [Suspect]
     Active Substance: ADALIMUMAB
     Route: 058
     Dates: start: 201312, end: 201404
  2. FLU SHOT [Suspect]
     Active Substance: INFLUENZA VIRUS VACCINE
     Indication: ANTIVIRAL PROPHYLAXIS
     Route: 065
     Dates: start: 2011, end: 2011
  3. RIFAMPIN. [Suspect]
     Active Substance: RIFAMPIN
     Indication: TUBERCULOSIS
     Route: 065
     Dates: start: 201405, end: 20140910
  4. SORIATANE [Suspect]
     Active Substance: ACITRETIN
     Indication: PSORIASIS
     Dosage: DAILY
     Route: 065
  5. HUMIRA [Suspect]
     Active Substance: ADALIMUMAB
     Indication: PSORIASIS
     Route: 058
     Dates: start: 2011
  6. METHOTREXATE. [Suspect]
     Active Substance: METHOTREXATE
     Indication: PRODUCT USED FOR UNKNOWN INDICATION
     Route: 065
  7. PAXIL [Concomitant]
     Active Substance: PAROXETINE HYDROCHLORIDE
     Indication: ANXIETY
     Dosage: IN THE MORNING
     Route: 065

REACTIONS (25)
  - Fluid retention [Recovered/Resolved]
  - Blood triglycerides increased [Recovered/Resolved]
  - Influenza like illness [Recovering/Resolving]
  - Deafness [Recovered/Resolved]
  - Hypoaesthesia [Unknown]
  - Latent tuberculosis [Unknown]
  - Blood cholesterol increased [Recovered/Resolved]
  - Vision blurred [Not Recovered/Not Resolved]
  - Arthralgia [Recovering/Resolving]
  - Nausea [Recovered/Resolved]
  - Acute febrile neutrophilic dermatosis [Unknown]
  - Pain [Not Recovered/Not Resolved]
  - Burning sensation [Recovering/Resolving]
  - Pustular psoriasis [Recovered/Resolved]
  - Adverse drug reaction [Unknown]
  - Pain [Recovering/Resolving]
  - Tinnitus [Recovered/Resolved]
  - Pain [Unknown]
  - Fatigue [Not Recovered/Not Resolved]
  - Myalgia [Not Recovered/Not Resolved]
  - Mood swings [Not Recovered/Not Resolved]
  - Hepatic enzyme increased [Recovered/Resolved]
  - Psoriasis [Recovering/Resolving]
  - Fatigue [Recovered/Resolved]
  - Dyspepsia [Not Recovered/Not Resolved]

NARRATIVE: CASE EVENT DATE: 2011
